FAERS Safety Report 24370664 (Version 1)
Quarter: 2024Q3

REPORT INFORMATION
  Report Type: Spontaneous
  Country: US (occurrence: US)
  Receive Date: 20240927
  Receipt Date: 20240927
  Transmission Date: 20241017
  Serious: Yes (Other)
  Sender: RECKITT BENCKISER
  Company Number: US-Indivior Limited-INDV-141813-2023

PATIENT
  Age: 31 Year
  Sex: Male

DRUGS (3)
  1. PERSERIS [Suspect]
     Active Substance: RISPERIDONE
     Indication: Schizophrenia
     Dosage: 90 MILLIGRAM, QMO
     Route: 065
     Dates: start: 20230918
  2. PERSERIS [Suspect]
     Active Substance: RISPERIDONE
     Dosage: 90 MILLIGRAM, QMO
     Route: 065
     Dates: start: 20231016
  3. PERSERIS [Suspect]
     Active Substance: RISPERIDONE
     Dosage: 90 MILLIGRAM, QMO
     Route: 065
     Dates: start: 20231123

REACTIONS (2)
  - Syncope [Recovered/Resolved]
  - Hypotension [Recovered/Resolved]

NARRATIVE: CASE EVENT DATE: 20231016
